FAERS Safety Report 8122071-1 (Version None)
Quarter: 2012Q1

REPORT INFORMATION
  Report Type: 
  Country: None (occurrence: None)
  Receive Date: 20120208
  Receipt Date: 20120207
  Transmission Date: 20120608
  Serious: Yes (Other)
  Sender: FDA-Public Use
  Company Number: US-ROCHE-1037778

PATIENT
  Sex: Female

DRUGS (3)
  1. ACCUTANE [Suspect]
     Route: 065
     Dates: start: 19940901, end: 19951001
  2. ACCUTANE [Suspect]
     Route: 065
     Dates: start: 19981101, end: 20020701
  3. ACCUTANE [Suspect]
     Indication: PRODUCT USED FOR UNKNOWN INDICATION
     Route: 065
     Dates: start: 19920801, end: 19940301

REACTIONS (1)
  - CROHN'S DISEASE [None]
